FAERS Safety Report 6369379-8 (Version None)
Quarter: 2009Q3

REPORT INFORMATION
  Report Type: 
  Country: None (occurrence: None)
  Receive Date: 20090917
  Receipt Date: 20090903
  Transmission Date: 20100115
  Serious: Yes (Hospitalization)
  Sender: FDA-Public Use
  Company Number: ABX40-09-0422

PATIENT
  Age: 57 Year
  Sex: Female

DRUGS (9)
  1. ABRAXANE [Suspect]
     Indication: BREAST CANCER
     Dosage: INTRAVENOUS
     Route: 042
     Dates: start: 20070131
  2. CYCLOPHOSPHAMIDE [Suspect]
     Indication: BREAST CANCER
     Dosage: INTRAVENOUS
     Route: 042
     Dates: start: 20070131
  3. DOXORUBICIN HCL [Suspect]
     Indication: BREAST CANCER
     Dosage: INTRAVENOUS
     Route: 042
     Dates: start: 20070131
  4. BEVACIZUMAB (BEVACIZUMAB) [Suspect]
     Indication: BREAST CANCER
     Dosage: INTRAVENOUS
     Route: 042
     Dates: start: 20070131
  5. NEULASTA [Suspect]
     Dosage: SUBCUTANEOUS
     Route: 058
     Dates: start: 20070201
  6. APREPITANT [Concomitant]
  7. BUPROPION HYDROCHLORIDE [Concomitant]
  8. DEXAMETHASONE TAB [Concomitant]
  9. LANSOPRAZOLE [Concomitant]

REACTIONS (3)
  - DECREASED APPETITE [None]
  - FEBRILE NEUTROPENIA [None]
  - WOUND COMPLICATION [None]
